FAERS Safety Report 13133587 (Version 1)
Quarter: 2017Q1

REPORT INFORMATION
  Report Type: Spontaneous
  Country: US (occurrence: US)
  Receive Date: 20170120
  Receipt Date: 20170120
  Transmission Date: 20170428
  Serious: No
  Sender: FDA-Public Use
  Company Number: US-OTSUKA-2016_024431

PATIENT
  Sex: Female

DRUGS (2)
  1. REXULTI [Suspect]
     Active Substance: BREXPIPRAZOLE
     Indication: SCHIZOPHRENIA
     Dosage: 0.5 MG, QD
     Route: 048
     Dates: end: 20161013
  2. REXULTI [Suspect]
     Active Substance: BREXPIPRAZOLE
     Dosage: 0.25 MG, QD (HALF OF 0.5 MG TABLET)
     Route: 048
     Dates: start: 20160927

REACTIONS (9)
  - Thirst [Unknown]
  - Insomnia [Unknown]
  - Off label use [Unknown]
  - Hot flush [Unknown]
  - Chest pain [Unknown]
  - Hunger [Unknown]
  - Wrong technique in product usage process [Unknown]
  - Weight increased [Unknown]
  - Formication [Unknown]

NARRATIVE: CASE EVENT DATE: 20160927
